FAERS Safety Report 14832344 (Version 1)
Quarter: 2018Q2

REPORT INFORMATION
  Report Type: Spontaneous
  Country: US (occurrence: US)
  Receive Date: 20180418
  Receipt Date: 20180418
  Transmission Date: 20180711
  Serious: Yes (Hospitalization)
  Sender: FDA-Public Use
  Company Number: None

PATIENT
  Age: 79 Year
  Sex: Female

DRUGS (2)
  1. NONE LISTED [Concomitant]
  2. TASIGNA [Suspect]
     Active Substance: NILOTINIB
     Indication: CHRONIC LEUKAEMIA
     Route: 048
     Dates: start: 20180106

REACTIONS (3)
  - Cardiac failure congestive [None]
  - Pneumonia [None]
  - Heart rate increased [None]

NARRATIVE: CASE EVENT DATE: 20180301
